FAERS Safety Report 6444222-7 (Version None)
Quarter: 2009Q4

REPORT INFORMATION
  Report Type: 
  Country: None (occurrence: None)
  Receive Date: 20091116
  Receipt Date: 20091116
  Transmission Date: 20100525
  Serious: Yes (Life-Threatening, Hospitalization)
  Sender: FDA-Public Use
  Company Number: None

PATIENT
  Age: 26 Year
  Sex: Male
  Weight: 79.3795 kg

DRUGS (2)
  1. RANITIDINE [Suspect]
     Indication: GASTROOESOPHAGEAL REFLUX DISEASE
     Dosage: 1 TAB 2X DAY PO   1 ONLY
     Route: 048
     Dates: start: 20091029
  2. NAPROXEN [Concomitant]

REACTIONS (7)
  - DEPRESSED LEVEL OF CONSCIOUSNESS [None]
  - HYPERTENSION [None]
  - HYPOTENSION [None]
  - LETHARGY [None]
  - MYDRIASIS [None]
  - RASH [None]
  - VOMITING [None]
